FAERS Safety Report 18297586 (Version 1)
Quarter: 2020Q3

REPORT INFORMATION
  Report Type: Spontaneous
  Country: US (occurrence: US)
  Receive Date: 20200922
  Receipt Date: 20200922
  Transmission Date: 20201103
  Serious: Yes (Other)
  Sender: FDA-Public Use
  Company Number: US-PFIZER INC-2016272861

PATIENT
  Age: 49 Year
  Sex: Male

DRUGS (11)
  1. PERCOCET [Concomitant]
     Active Substance: ACETAMINOPHEN\OXYCODONE HYDROCHLORIDE
     Indication: PAIN
     Dosage: 2 DF, AS NEEDED (2 DF DAILY AT BEDTIME AS NEEDED)
     Route: 048
  2. CYCLOBENZAPRINE HCL [Concomitant]
     Active Substance: CYCLOBENZAPRINE HYDROCHLORIDE
     Indication: BACK PAIN
     Dosage: 25 MG, AS NEEDED (1/2 TAB THREE TIMES A DAY AND 1 AT BEDTIME AS NEEDED)
     Route: 048
  3. BELVIQ [Concomitant]
     Active Substance: LORCASERIN HYDROCHLORIDE
     Dosage: 10 MG, 2X/DAY
     Route: 048
  4. AMLODIPINE BESYLATE. [Concomitant]
     Active Substance: AMLODIPINE BESYLATE
     Indication: HYPERTENSION
     Dosage: 2.5 MG, 1X/DAY (IN AM)
     Route: 048
  5. LYRICA [Suspect]
     Active Substance: PREGABALIN
     Dosage: 150 MG, 2X/DAY (1 CAP IN AM AND PM)
     Route: 048
  6. ZYLOPRIM [Concomitant]
     Active Substance: ALLOPURINOL
     Indication: GOUT
     Dosage: 300 MG, 1X/DAY (AT BEDTIME)
     Route: 048
  7. ASPIRIN [ACETYLSALICYLIC ACID] [Concomitant]
     Active Substance: ASPIRIN
     Dosage: 81 MG, DAILY
     Route: 048
  8. BUPROPION HYDROCHLORIDE. [Concomitant]
     Active Substance: BUPROPION HYDROCHLORIDE
     Dosage: 150 MG, 1X/DAY (IN AM)
     Route: 048
  9. INDOMETHACIN [INDOMETACIN] [Concomitant]
     Active Substance: INDOMETHACIN
     Indication: GOUT
     Dosage: 25 MG, AS NEEDED (1 TAB DAILY AS NEEDED)
     Route: 048
  10. TRAZODONE HYDROCHLORIDE. [Concomitant]
     Active Substance: TRAZODONE HYDROCHLORIDE
     Dosage: 450 MG, 1X/DAY (AT BEDTIME)
     Route: 048
  11. NASONEX [Concomitant]
     Active Substance: MOMETASONE FUROATE
     Dosage: 1?2 SQUIRTS EACH NOSTRIL DAILY
     Route: 045

REACTIONS (1)
  - Type 2 diabetes mellitus [Unknown]
